FAERS Safety Report 4407099-7 (Version None)
Quarter: 2004Q3

REPORT INFORMATION
  Report Type: 
  Country: None (occurrence: None)
  Receive Date: 20040721
  Receipt Date: 20040707
  Transmission Date: 20050211
  Serious: Yes (Hospitalization)
  Sender: FDA-Public Use
  Company Number: 178682

PATIENT
  Age: 51 Year
  Sex: Female
  Weight: 70.7611 kg

DRUGS (3)
  1. AVONEX [Suspect]
     Indication: MULTIPLE SCLEROSIS
     Dosage: 30 MCG QW IM
     Route: 030
     Dates: start: 19960101
  2. TEGRETOL [Concomitant]
  3. METHOTREXATE [Concomitant]

REACTIONS (4)
  - BIPOLAR I DISORDER [None]
  - MOOD ALTERED [None]
  - SLEEP APNOEA SYNDROME [None]
  - SUICIDAL IDEATION [None]
